FAERS Safety Report 6316330-2 (Version None)
Quarter: 2009Q3

REPORT INFORMATION
  Report Type: 
  Country: None (occurrence: None)
  Receive Date: 20090820
  Receipt Date: 20090814
  Transmission Date: 20100115
  Serious: Yes (Life-Threatening, Disabling, Other)
  Sender: FDA-Public Use
  Company Number: A0799696A

PATIENT
  Age: 60 Year
  Sex: Female
  Weight: 71.4 kg

DRUGS (2)
  1. LAMICTAL [Suspect]
     Indication: BIPOLAR DISORDER
     Dosage: 100MG PER DAY
     Route: 048
  2. ASPIRIN [Concomitant]

REACTIONS (2)
  - RASH [None]
  - SCAR [None]
